FAERS Safety Report 6387361-1 (Version None)
Quarter: 2009Q3

REPORT INFORMATION
  Report Type: 
  Country: None (occurrence: None)
  Receive Date: 20090930
  Receipt Date: 20090914
  Transmission Date: 20100115
  Serious: Yes (Death, Hospitalization)
  Sender: FDA-Public Use
  Company Number: 2008AL010964

PATIENT
  Age: 72 Year
  Sex: Female

DRUGS (46)
  1. DIGOXIN [Suspect]
     Dosage: 0.25MG, DAILY, PO, 0.125MG, QOD, PO
     Route: 048
     Dates: start: 20041013
  2. NOVOLOG [Concomitant]
  3. CARAFATE [Concomitant]
  4. PAMELOR [Concomitant]
  5. ZESTRIL [Concomitant]
  6. ZOCOR [Concomitant]
  7. LOPRESSOR [Concomitant]
  8. PREDNISONE [Concomitant]
  9. K-DUR [Concomitant]
  10. PRILOSEC [Concomitant]
  11. ASPIRIN [Concomitant]
  12. KEFLEX [Concomitant]
  13. PERCOCET [Concomitant]
  14. GLUCOPHAGE [Concomitant]
  15. LASIX [Concomitant]
  16. AMBIEN [Concomitant]
  17. FOSAMEX [Concomitant]
  18. POTASSIUM CHLORIDE [Concomitant]
  19. CALCIUM [Concomitant]
  20. NORTRIPTYLINE [Concomitant]
  21. BION TEARS [Concomitant]
  22. LISINOPRIL [Concomitant]
  23. METOPROLOL [Concomitant]
  24. NITROGLYCERIN [Concomitant]
  25. NORTRIPTYLINE [Concomitant]
  26. CIPROFLOXACIN HYDROCHLORIDE [Concomitant]
  27. ISOSORBIDE MONONITRATE [Concomitant]
  28. CLINDAMYCIN [Concomitant]
  29. METFORMIN HYDROCHLORIDE [Concomitant]
  30. LEXAPRO [Concomitant]
  31. OXYCODONE [Concomitant]
  32. OMEPRAZOLE [Concomitant]
  33. SIMVASTATIN [Concomitant]
  34. ZOLPIDEM [Concomitant]
  35. NITROGLYCERIN [Concomitant]
  36. AVELIDE [Concomitant]
  37. ALLOPURINOL [Concomitant]
  38. CATAPRES [Concomitant]
  39. COREG [Concomitant]
  40. LIPITOR [Concomitant]
  41. AMIODARONE [Concomitant]
  42. ASPIRIN [Concomitant]
  43. LIPITOR [Concomitant]
  44. VITAMIN D [Concomitant]
  45. PERCOCET [Concomitant]
  46. CALCIUM CARBONATE [Concomitant]

REACTIONS (53)
  - ANHEDONIA [None]
  - ARTHRALGIA [None]
  - ASCITES [None]
  - ASTHENIA [None]
  - ATRIAL FIBRILLATION [None]
  - BACK PAIN [None]
  - CARDIAC FAILURE CONGESTIVE [None]
  - CATARACT [None]
  - CELLULITIS [None]
  - CLOSTRIDIUM DIFFICILE COLITIS [None]
  - COMMUNICATION DISORDER [None]
  - CONFUSIONAL STATE [None]
  - CONJUNCTIVITIS [None]
  - CONTUSION [None]
  - DEAFNESS NEUROSENSORY [None]
  - DEPRESSED MOOD [None]
  - DIARRHOEA [None]
  - DRY EYE [None]
  - ECONOMIC PROBLEM [None]
  - EMOTIONAL DISORDER [None]
  - EMOTIONAL DISTRESS [None]
  - ENTEROCOLITIS INFECTIOUS [None]
  - FALL [None]
  - GLUCOSE TOLERANCE IMPAIRED [None]
  - HEADACHE [None]
  - HYALOSIS ASTEROID [None]
  - HYPERCHOLESTEROLAEMIA [None]
  - HYPERHIDROSIS [None]
  - HYPERTRIGLYCERIDAEMIA [None]
  - HYPOTENSION [None]
  - INJURY [None]
  - INTRAOCULAR LENS IMPLANT [None]
  - LETHARGY [None]
  - MENTAL DISORDER [None]
  - NERVE INJURY [None]
  - OPTIC ATROPHY [None]
  - OSTEOPOROSIS [None]
  - PAIN [None]
  - PERIPHERAL ISCHAEMIA [None]
  - PLEURAL EFFUSION [None]
  - POLYMYALGIA RHEUMATICA [None]
  - ROTATOR CUFF SYNDROME [None]
  - SEPSIS [None]
  - SINUS CONGESTION [None]
  - SKIN LACERATION [None]
  - SOCIAL AVOIDANT BEHAVIOUR [None]
  - TEMPORAL ARTERITIS [None]
  - TENDON RUPTURE [None]
  - TINNITUS [None]
  - UNEVALUABLE EVENT [None]
  - URINARY TRACT INFECTION PSEUDOMONAL [None]
  - VISION BLURRED [None]
  - VITAMIN D DEFICIENCY [None]
